FAERS Safety Report 5979479-X (Version None)
Quarter: 2008Q4

REPORT INFORMATION
  Report Type: 
  Country: None (occurrence: None)
  Receive Date: 20081204
  Receipt Date: 20081123
  Transmission Date: 20090506
  Serious: Yes (Death, Hospitalization)
  Sender: FDA-Public Use
  Company Number: IL-ELI_LILLY_AND_COMPANY-IL200811000836

PATIENT
  Age: 35 Year
  Sex: Male
  Weight: 81.5 kg

DRUGS (8)
  1. ZYPREXA [Suspect]
     Dosage: 30 MG, UNK
  2. ZYPREXA [Suspect]
     Dosage: 20 MG, DAILY (1/D)
     Route: 048
     Dates: start: 20081013, end: 20080101
  3. ZYPREXA [Suspect]
     Dosage: 30 MG, DAILY (1/D)
     Route: 048
     Dates: start: 20080101, end: 20080101
  4. ZYPREXA [Suspect]
     Dosage: 40 MG, DAILY (1/D)
     Route: 048
     Dates: start: 20080101, end: 20081105
  5. LITHIUM [Concomitant]
     Dosage: 1.2 G, DAILY (1/D)
  6. LITHIUM [Concomitant]
     Dosage: 1.8 G, DAILY (1/D)
     Dates: start: 20080101
  7. LOVAZA [Concomitant]
  8. MELATONIN [Concomitant]

REACTIONS (6)
  - ASTHENIA [None]
  - DEATH [None]
  - EXTRAPYRAMIDAL DISORDER [None]
  - MANIA [None]
  - OVERDOSE [None]
  - SOMNOLENCE [None]
